FAERS Safety Report 4472466-2 (Version None)
Quarter: 2004Q4

REPORT INFORMATION
  Report Type: 
  Country: None (occurrence: None)
  Receive Date: 20041007
  Receipt Date: 20040924
  Transmission Date: 20050328
  Serious: Yes (Death, Other)
  Sender: FDA-Public Use
  Company Number: 2004235573US

PATIENT
  Age: 83 Year
  Sex: Female

DRUGS (2)
  1. BEXTRA [Suspect]
     Indication: ARTHRITIS
  2. ANTIHYPERTENSIVES [Concomitant]

REACTIONS (5)
  - CEREBRAL HAEMORRHAGE TRAUMATIC [None]
  - FALL [None]
  - PRURITUS [None]
  - RASH [None]
  - TRANSIENT ISCHAEMIC ATTACK [None]
